FAERS Safety Report 4819409-7 (Version None)
Quarter: 2005Q4

REPORT INFORMATION
  Report Type: 
  Country: None (occurrence: None)
  Receive Date: 20051103
  Receipt Date: 20051024
  Transmission Date: 20060501
  Serious: Yes (Other)
  Sender: FDA-Public Use
  Company Number: GB-SANOFI-SYNTHELABO-A01200507341

PATIENT
  Age: 72 Year
  Sex: Male

DRUGS (2)
  1. XATRAL XL [Suspect]
     Indication: PROSTATISM
     Dosage: 1 UNIT
     Route: 048
     Dates: start: 20050310, end: 20051020
  2. ASPIRIN [Concomitant]
     Indication: DRUG USE FOR UNKNOWN INDICATION
     Dosage: 75 MG
     Route: 065

REACTIONS (1)
  - ARTHRALGIA [None]
